FAERS Safety Report 23460830 (Version 1)
Quarter: 2024Q1

REPORT INFORMATION
  Report Type: Spontaneous
  Country: US (occurrence: US)
  Receive Date: 20240131
  Receipt Date: 20240131
  Transmission Date: 20240410
  Serious: No
  Sender: FDA-Public Use
  Company Number: US-SA-2024SA027778

PATIENT
  Age: 19 Month
  Sex: Male

DRUGS (2)
  1. ALPROLIX [Suspect]
     Active Substance: EFTRENONACOG ALFA
     Indication: Factor IX deficiency
     Dosage: 750 U, QW
     Route: 042
     Dates: start: 202307
  2. ALPROLIX [Suspect]
     Active Substance: EFTRENONACOG ALFA
     Indication: Factor IX deficiency
     Dosage: 750 U, QW
     Route: 042
     Dates: start: 202307

REACTIONS (3)
  - Fall [Unknown]
  - Lip swelling [Unknown]
  - Lip injury [Unknown]

NARRATIVE: CASE EVENT DATE: 20240117
